FAERS Safety Report 12568776 (Version 4)
Quarter: 2017Q2

REPORT INFORMATION
  Report Type: Spontaneous
  Country: JP (occurrence: JP)
  Receive Date: 20160719
  Receipt Date: 20170526
  Transmission Date: 20170830
  Serious: Yes (Hospitalization, Other)
  Sender: FDA-Public Use
  Company Number: JP-ORION CORPORATION ORION PHARMA-ENT 2016-0105

PATIENT
  Age: 84 Year
  Sex: Male
  Weight: 41 kg

DRUGS (4)
  1. NEXIUM [Concomitant]
     Active Substance: ESOMEPRAZOLE MAGNESIUM
     Route: 065
  2. COMTAN [Suspect]
     Active Substance: ENTACAPONE
     Route: 048
     Dates: start: 20160614
  3. COMTAN [Suspect]
     Active Substance: ENTACAPONE
     Indication: PARKINSON^S DISEASE
     Route: 048
     Dates: end: 20160612
  4. SANMEL [Concomitant]
     Route: 065

REACTIONS (3)
  - Haematemesis [Unknown]
  - Gastric ulcer haemorrhage [Recovering/Resolving]
  - Oral mucosal discolouration [Recovering/Resolving]

NARRATIVE: CASE EVENT DATE: 20160612
